FAERS Safety Report 15576816 (Version 1)
Quarter: 2018Q4

REPORT INFORMATION
  Report Type: Spontaneous
  Country: IT (occurrence: IT)
  Receive Date: 20181101
  Receipt Date: 20181101
  Transmission Date: 20190205
  Serious: Yes (Other)
  Sender: FDA-Public Use
  Company Number: IT-GLAXOSMITHKLINE-IT2018060412

PATIENT

DRUGS (1)
  1. VOLTFAST [Suspect]
     Active Substance: DICLOFENAC
     Indication: DYSMENORRHOEA
     Dosage: UNK
     Route: 048

REACTIONS (4)
  - Angioedema [Recovered/Resolved]
  - Dysphagia [Recovered/Resolved]
  - Hypersensitivity [Recovered/Resolved]
  - Urticaria [Recovered/Resolved]

NARRATIVE: CASE EVENT DATE: 20180106
